FAERS Safety Report 4825083-6 (Version None)
Quarter: 2005Q4

REPORT INFORMATION
  Report Type: 
  Country: None (occurrence: None)
  Receive Date: 20051109
  Receipt Date: 20051109
  Transmission Date: 20060501
  Serious: Yes (Life-Threatening, Other)
  Sender: FDA-Public Use
  Company Number: None

PATIENT
  Sex: Female
  Weight: 43.0917 kg

DRUGS (2)
  1. TAXOTERE [Suspect]
     Indication: NON-SMALL CELL LUNG CANCER RECURRENT
     Dosage: 100MG  Q 3 WEEKS   IV DRIP  (PT RECEIVED 2ND DOSE)
     Route: 041
  2. TAXOTERE [Suspect]

REACTIONS (2)
  - DYSPNOEA [None]
  - INFUSION RELATED REACTION [None]
